FAERS Safety Report 18640280 (Version 1)
Quarter: 2020Q4

REPORT INFORMATION
  Report Type: Spontaneous
  Country: US (occurrence: US)
  Receive Date: 20201220
  Receipt Date: 20201220
  Transmission Date: 20210114
  Serious: No
  Sender: FDA-Public Use
  Company Number: US-PERRIGO-20US004603

PATIENT
  Age: 82 Year
  Sex: Female
  Weight: 41.95 kg

DRUGS (6)
  1. LISINOPRIL. [Concomitant]
     Active Substance: LISINOPRIL
     Indication: HYPERTENSION
     Dosage: .5 MG, UNKNOWN
     Route: 065
     Dates: start: 201912
  2. ASPIRIN                            /00002701/ [Concomitant]
     Active Substance: ASPIRIN
     Indication: PROPHYLAXIS
     Dosage: 81 MG, UNKNOWN
     Route: 065
  3. MUPIROCIN. [Suspect]
     Active Substance: MUPIROCIN
     Indication: WOUND INFECTION
     Dosage: UNKNOWN, SINGLE
     Route: 061
     Dates: start: 20200323, end: 20200323
  4. GENTAMICIN. [Suspect]
     Active Substance: GENTAMICIN
     Indication: WOUND INFECTION
     Dosage: UNKNOWN, SINGLE
     Route: 061
     Dates: start: 20200323, end: 20200323
  5. VITAMIN D3 [Concomitant]
     Active Substance: CHOLECALCIFEROL
     Indication: SUPPLEMENTATION THERAPY
     Dosage: UNK
     Route: 065
  6. OCUVITE [Concomitant]
     Active Substance: VITAMINS
     Indication: SUPPLEMENTATION THERAPY
     Dosage: UNK
     Route: 065

REACTIONS (3)
  - Application site erythema [Not Recovered/Not Resolved]
  - Off label use [Recovered/Resolved]
  - Product administration error [Recovered/Resolved]

NARRATIVE: CASE EVENT DATE: 20200323
